FAERS Safety Report 8661652 (Version 5)
Quarter: 2012Q4

REPORT INFORMATION
  Report Type: Spontaneous
  Country: JP (occurrence: None)
  Receive Date: 20120625
  Receipt Date: 20120925
  Transmission Date: 20130627
  Serious: Yes (Hospitalization)
  Sender: FDA-Public Use
  Company Number: TPA2012A03880

PATIENT
  Age: 74 Year
  Sex: Female

DRUGS (4)
  1. FEBUXOSTAT [Suspect]
     Indication: HYPERURICAEMIA
     Route: 048
     Dates: start: 20120524, end: 20120530
  2. LASIX [Concomitant]
  3. MIYA-BM [Concomitant]
  4. LIVACY (LEUCINE, VALINE, ISOLEUCINE) [Concomitant]

REACTIONS (2)
  - Agranulocytosis [None]
  - Leukopenia [None]
